FAERS Safety Report 6391415-3 (Version None)
Quarter: 2009Q4

REPORT INFORMATION
  Report Type: 
  Country: None (occurrence: None)
  Receive Date: 20091007
  Receipt Date: 20090929
  Transmission Date: 20100525
  Serious: Yes (Hospitalization, Other)
  Sender: FDA-Public Use
  Company Number: US-JNJFOC-20090908941

PATIENT
  Sex: Female
  Weight: 136.08 kg

DRUGS (1)
  1. FENTANYL TRANSDERMAL SYSTEM [Suspect]
     Indication: BACK PAIN
     Route: 062
     Dates: start: 20090601

REACTIONS (12)
  - ABASIA [None]
  - APPLICATION SITE ERYTHEMA [None]
  - APPLICATION SITE IRRITATION [None]
  - APPLICATION SITE RASH [None]
  - DIZZINESS [None]
  - DYSSTASIA [None]
  - FALL [None]
  - HAEMATOMA [None]
  - LIMB INJURY [None]
  - OEDEMA PERIPHERAL [None]
  - SEPSIS [None]
  - STAPHYLOCOCCAL INFECTION [None]
